FAERS Safety Report 6369310-5 (Version None)
Quarter: 2009Q3

REPORT INFORMATION
  Report Type: 
  Country: None (occurrence: None)
  Receive Date: 20090916
  Receipt Date: 20090903
  Transmission Date: 20100115
  Serious: Yes (Life-Threatening, Hospitalization, Other)
  Sender: FDA-Public Use
  Company Number: 2009AP002516

PATIENT
  Age: 42 Year
  Sex: Female

DRUGS (1)
  1. CARBAMAZEPINE [Suspect]
     Indication: TRIGEMINAL NEURALGIA
     Dosage: 150 MG; PO; QD
     Route: 048
     Dates: start: 20090318, end: 20090328

REACTIONS (6)
  - CANDIDA PNEUMONIA [None]
  - CONTUSION [None]
  - FALL [None]
  - LACERATION [None]
  - SEPSIS [None]
  - TOXIC EPIDERMAL NECROLYSIS [None]
